FAERS Safety Report 6896993-3 (Version None)
Quarter: 2010Q3

REPORT INFORMATION
  Report Type: 
  Country: None (occurrence: None)
  Receive Date: 20100802
  Receipt Date: 20070323
  Transmission Date: 20110219
  Serious: No
  Sender: FDA-Public Use
  Company Number: US-PFIZER INC-2007023255

PATIENT
  Sex: Male

DRUGS (5)
  1. LYRICA [Suspect]
     Indication: PAIN
     Route: 048
     Dates: start: 20070224, end: 20070308
  2. LYRICA [Suspect]
     Route: 048
     Dates: start: 20070309
  3. PROPACET 100 [Concomitant]
  4. OMEPRAZOLE [Concomitant]
  5. AMBIEN [Concomitant]

REACTIONS (1)
  - DYSGEUSIA [None]
